FAERS Safety Report 8015727-2 (Version None)
Quarter: 2011Q4

REPORT INFORMATION
  Report Type: 
  Country: None (occurrence: None)
  Receive Date: 20111230
  Receipt Date: 20111228
  Transmission Date: 20120403
  Serious: Yes (Death)
  Sender: FDA-Public Use
  Company Number: PHHY2011CN104691

PATIENT
  Sex: Male

DRUGS (1)
  1. DESFERAL INF. [Suspect]
     Indication: APLASTIC ANAEMIA
     Dosage: 2.5 G, QD
     Dates: start: 20111121

REACTIONS (1)
  - SUDDEN DEATH [None]
